FAERS Safety Report 6094912-3 (Version None)
Quarter: 2009Q1

REPORT INFORMATION
  Report Type: 
  Country: None (occurrence: None)
  Receive Date: 20090227
  Receipt Date: 20090218
  Transmission Date: 20090719
  Serious: Yes (Other)
  Sender: FDA-Public Use
  Company Number: US-JNJFOC-20090204689

PATIENT
  Age: 44 Year
  Sex: Male

DRUGS (4)
  1. INFLIXIMAB [Suspect]
     Indication: ANKYLOSING SPONDYLITIS
     Route: 042
  2. METHOTREXATE [Suspect]
     Indication: ANKYLOSING SPONDYLITIS
  3. PREDNISONE [Suspect]
     Indication: ANKYLOSING SPONDYLITIS
     Route: 048
  4. PREDNISONE [Suspect]
     Indication: DRUG USE FOR UNKNOWN INDICATION
     Dosage: RIGHT EYE EVERY 2 HOURS WHILE AWAKE, LEFT EYE EVERY 12 HOURS
     Route: 047

REACTIONS (1)
  - MYCOBACTERIAL INFECTION [None]
